FAERS Safety Report 21839153 (Version 4)
Quarter: 2023Q1

REPORT INFORMATION
  Report Type: Spontaneous
  Country: US (occurrence: US)
  Receive Date: 20230109
  Receipt Date: 20230131
  Transmission Date: 20230417
  Serious: No
  Sender: FDA-Public Use
  Company Number: US-002147023-NVSC2023US003906

PATIENT
  Sex: Female

DRUGS (1)
  1. COMBIPATCH [Suspect]
     Active Substance: ESTRADIOL\NORETHINDRONE ACETATE
     Indication: Hot flush
     Dosage: 0.05 / 0.14 MG, 1 PATCH IN 3-4 DAYS
     Route: 062

REACTIONS (3)
  - Device issue [Recovered/Resolved]
  - Product administered at inappropriate site [Recovered/Resolved]
  - Therapeutic product ineffective [Recovered/Resolved]
